FAERS Safety Report 15453858 (Version 3)
Quarter: 2018Q4

REPORT INFORMATION
  Report Type: Spontaneous
  Country: US (occurrence: US)
  Receive Date: 20181001
  Receipt Date: 20181205
  Transmission Date: 20190204
  Serious: Yes (Other)
  Sender: FDA-Public Use
  Company Number: US-AMGEN INC.-USASP2018133562

PATIENT
  Age: 62 Year
  Sex: Female
  Weight: 45.35 kg

DRUGS (5)
  1. FENTANYL. [Concomitant]
     Active Substance: FENTANYL
     Indication: PAIN
     Dosage: 100 MUG, QH, PATCH, EVERY 2 DAYS
     Route: 062
  2. AIMOVIG [Suspect]
     Active Substance: ERENUMAB-AOOE
     Indication: MIGRAINE WITHOUT AURA
     Dosage: 70 MG, UNK
     Route: 065
     Dates: start: 20180824
  3. ACETAMINOPHEN W/HYDROCODONE [Concomitant]
     Active Substance: ACETAMINOPHEN\HYDROCODONE
     Indication: BREAKTHROUGH PAIN
     Dosage: 10-325 MG, 4 TIMES A DAY, PRN
     Route: 048
  4. PANTOPRAZOLE SODIUM. [Concomitant]
     Active Substance: PANTOPRAZOLE SODIUM
     Dosage: 40 MG, QD
     Route: 048
  5. TROKENDI [Concomitant]
     Active Substance: TOPIRAMATE
     Dosage: 25 MG, UNK, 1 CAPSULE AT BEDTIME
     Route: 048

REACTIONS (11)
  - Pruritus generalised [Not Recovered/Not Resolved]
  - Constipation [Recovering/Resolving]
  - Onychomadesis [Recovered/Resolved]
  - Nail discolouration [Recovered/Resolved]
  - Tenderness [Unknown]
  - Rash pruritic [Recovered/Resolved]
  - Anxiety [Unknown]
  - Peripheral swelling [Recovered/Resolved]
  - Insomnia [Not Recovered/Not Resolved]
  - Restlessness [Recovering/Resolving]
  - Pain in extremity [Recovered/Resolved]

NARRATIVE: CASE EVENT DATE: 2018
